FAERS Safety Report 9146923 (Version 1)
Quarter: 2013Q1

REPORT INFORMATION
  Report Type: Spontaneous
  Country: US (occurrence: US)
  Receive Date: 20130307
  Receipt Date: 20130307
  Transmission Date: 20140127
  Serious: No
  Sender: FDA-Public Use
  Company Number: US-ASTRAZENECA-2009UW05798

PATIENT
  Age: 816 Month
  Sex: Female
  Weight: 107.5 kg

DRUGS (5)
  1. NEXIUM [Suspect]
     Indication: GASTROOESOPHAGEAL REFLUX DISEASE
     Route: 048
     Dates: start: 20010301
  2. NEXIUM [Suspect]
     Indication: GASTROOESOPHAGEAL REFLUX DISEASE
     Route: 048
     Dates: start: 20010301
  3. SEROQUEL [Suspect]
     Indication: SLEEP APNOEA SYNDROME
     Route: 048
  4. SEROQUEL [Suspect]
     Indication: SLEEP APNOEA SYNDROME
     Route: 048
  5. SYNTHROID [Concomitant]
     Dates: start: 1995

REACTIONS (7)
  - Back pain [Unknown]
  - Nausea [Not Recovered/Not Resolved]
  - Abdominal pain upper [Unknown]
  - Dysgeusia [Not Recovered/Not Resolved]
  - Malaise [Unknown]
  - Vomiting [Unknown]
  - Somnolence [Unknown]
